FAERS Safety Report 6471293-4 (Version None)
Quarter: 2009Q4

REPORT INFORMATION
  Report Type: 
  Country: None (occurrence: None)
  Receive Date: 20091203
  Receipt Date: 20071217
  Transmission Date: 20100525
  Serious: Yes (Other)
  Sender: FDA-Public Use
  Company Number: TR-ELI_LILLY_AND_COMPANY-TR200801006195

PATIENT
  Sex: Male
  Weight: 88 kg

DRUGS (4)
  1. HUMULIN N [Suspect]
     Indication: TYPE 2 DIABETES MELLITUS
     Dosage: 20 UNITS/NIGHT
     Route: 058
     Dates: start: 20020301
  2. HUMULIN R [Suspect]
     Indication: TYPE 2 DIABETES MELLITUS
     Dosage: 22 U
     Route: 058
     Dates: start: 20020301
  3. HUMULIN R [Suspect]
     Dosage: 22 U, NOON
     Route: 058
     Dates: start: 20020301
  4. HUMULIN R [Suspect]
     Dosage: 22 U, EACH EVENING
     Route: 058
     Dates: start: 20020301

REACTIONS (2)
  - INJECTION SITE OEDEMA [None]
  - RENAL TRANSPLANT [None]
